FAERS Safety Report 6285887-2 (Version None)
Quarter: 2009Q3

REPORT INFORMATION
  Report Type: 
  Country: None (occurrence: None)
  Receive Date: 20090728
  Receipt Date: 20090717
  Transmission Date: 20100115
  Serious: Yes (Other)
  Sender: FDA-Public Use
  Company Number: US-ELI_LILLY_AND_COMPANY-US200907001284

PATIENT
  Sex: Male

DRUGS (11)
  1. BYETTA [Suspect]
     Indication: TYPE 2 DIABETES MELLITUS
     Dosage: 5 UG, 2/D
     Dates: start: 20080529, end: 20080829
  2. BYETTA [Suspect]
     Dosage: 10 UG, 2/D
     Dates: start: 20080829, end: 20090626
  3. BENAZEPRIL HYDROCHLORIDE [Concomitant]
     Indication: HYPERTENSION
     Dosage: 10 MG, DAILY (1/D)
     Dates: start: 19990101
  4. JANUMET [Concomitant]
     Indication: DIABETES MELLITUS
     Dosage: UNK, 2/D
     Dates: end: 20081101
  5. FLOMAX [Concomitant]
     Dosage: UNK, DAILY (1/D)
     Dates: start: 20010101
  6. AVODART [Concomitant]
     Indication: BENIGN PROSTATIC HYPERPLASIA
     Dosage: UNK, DAILY (1/D)
  7. METOPROLOL TARTRATE [Concomitant]
     Indication: HYPERTENSION
     Dates: start: 19990101
  8. SIMVASTATIN [Concomitant]
     Indication: DIABETES MELLITUS
     Dates: start: 19990101
  9. CELEBREX [Concomitant]
     Indication: OSTEOARTHRITIS
     Dosage: UNK, DAILY (1/D)
     Dates: start: 20010101
  10. NEXIUM [Concomitant]
     Indication: GASTROOESOPHAGEAL REFLUX DISEASE
     Dosage: UNK, DAILY (1/D)
     Dates: start: 19990101
  11. ALLEGRA [Concomitant]
     Indication: RHINITIS ALLERGIC
     Dosage: 60 MG, 2/D
     Dates: start: 19990101

REACTIONS (3)
  - ALANINE AMINOTRANSFERASE INCREASED [None]
  - ASPARTATE AMINOTRANSFERASE INCREASED [None]
  - PANCREATITIS [None]
